FAERS Safety Report 10533989 (Version 1)
Quarter: 2014Q4

REPORT INFORMATION
  Report Type: Spontaneous
  Country: US (occurrence: None)
  Receive Date: 20141020
  Receipt Date: 20141020
  Transmission Date: 20150529
  Serious: Yes (Death)
  Sender: FDA-Public Use
  Company Number: 2014NUEUSA00386

PATIENT
  Age: 87 Year
  Sex: Female
  Weight: 47.3 kg

DRUGS (19)
  1. AMLODIPINE [Concomitant]
     Active Substance: AMLODIPINE BESYLATE
  2. TRAZODONE HCL (TRAZODONE HYDROCHLORIDE) [Concomitant]
  3. EAR WAX REMOVAL (UREA HYDROGEN PEROXIDE) [Concomitant]
  4. ASPERCREME (TROLAMINE SALICYLATE) [Concomitant]
  5. PRESERVISION AREDS (ASCORBIC ACID, BETACAROTENE, CUPRIC OXIDE, TOCOPHERYL ACETATE, ZINC OZIDE) [Concomitant]
  6. GABAPENTIN (GABAPENTIN) [Concomitant]
     Active Substance: GABAPENTIN
  7. SACCHAROMYCES BOULARDII [Concomitant]
     Active Substance: SACCHAROMYCES CEREVISIAE
  8. NUEDEXTA [Suspect]
     Active Substance: DEXTROMETHORPHAN HYDROBROMIDE\QUINIDINE SULFATE
     Indication: DEMENTIA
     Dosage: 1 CAP
     Route: 048
     Dates: start: 20140904, end: 20140910
  9. ZOLOFT [Concomitant]
     Active Substance: SERTRALINE HYDROCHLORIDE
  10. ZOFRAN (ONDANSETRON) [Concomitant]
  11. NUEDEXTA [Suspect]
     Active Substance: DEXTROMETHORPHAN HYDROBROMIDE\QUINIDINE SULFATE
     Indication: AFFECT LABILITY
     Dosage: 1 CAP
     Route: 048
     Dates: start: 20140904, end: 20140910
  12. TOPROL (METOPROLOL SUCCINATE) [Concomitant]
  13. NAMENDA [Concomitant]
     Active Substance: MEMANTINE HYDROCHLORIDE
  14. NUEDEXTA [Suspect]
     Active Substance: DEXTROMETHORPHAN HYDROBROMIDE\QUINIDINE SULFATE
     Dosage: 1 CAP
     Route: 048
     Dates: start: 20140904, end: 20140910
  15. PEPCID [Concomitant]
     Active Substance: FAMOTIDINE
  16. TYLENOL ARTHRITIS (PARACETAMOL) [Concomitant]
  17. TRAMADOL (TRAMADOL) [Concomitant]
     Active Substance: TRAMADOL
  18. LEVOTHYROXINE [Concomitant]
     Active Substance: LEVOTHYROXINE
  19. L-LYSINE [Concomitant]
     Active Substance: LYSINE

REACTIONS (1)
  - Respiratory disorder [None]

NARRATIVE: CASE EVENT DATE: 2014
